FAERS Safety Report 7622493-9 (Version None)
Quarter: 2011Q3

REPORT INFORMATION
  Report Type: 
  Country: None (occurrence: None)
  Receive Date: 20110701
  Receipt Date: 20101015
  Transmission Date: 20111222
  Serious: Yes (Other)
  Sender: FDA-Public Use
  Company Number: 7022424

PATIENT
  Age: 37 Year
  Sex: Female

DRUGS (2)
  1. DULCOLAX (DOCUSATE SODIUM) [Concomitant]
  2. REBIF [Suspect]
     Indication: MULTIPLE SCLEROSIS
     Dosage: 44 MCG, 3 IN 1 WK, SUBCUTANEOUS
     Route: 058
     Dates: start: 20071202

REACTIONS (1)
  - CONVULSION [None]
